FAERS Safety Report 24127155 (Version 1)
Quarter: 2024Q3

REPORT INFORMATION
  Report Type: Spontaneous
  Country: US (occurrence: None)
  Receive Date: 20240722
  Receipt Date: 20240722
  Transmission Date: 20241016
  Serious: Yes (Disabling)
  Sender: Public
  Company Number: None

PATIENT
  Age: 30 Year
  Sex: Male
  Weight: 81 kg

DRUGS (1)
  1. FINASTERIDE [Suspect]
     Active Substance: FINASTERIDE
     Indication: Androgenetic alopecia
     Dosage: 1 TABLET ORAL?
     Route: 048
     Dates: start: 20231204, end: 20240715

REACTIONS (3)
  - Libido decreased [None]
  - Erectile dysfunction [None]
  - Quality of life decreased [None]

NARRATIVE: CASE EVENT DATE: 20240301
